FAERS Safety Report 21209570 (Version 1)
Quarter: 2022Q3

REPORT INFORMATION
  Report Type: Spontaneous
  Country: FR (occurrence: NC)
  Receive Date: 20220813
  Receipt Date: 20220813
  Transmission Date: 20221027
  Serious: Yes (Life-Threatening, Hospitalization)
  Sender: FDA-Public Use
  Company Number: 2022A279452

PATIENT
  Age: 37 Year
  Sex: Male
  Weight: 108 kg

DRUGS (3)
  1. OMEPRAZOLE SODIUM [Suspect]
     Active Substance: OMEPRAZOLE SODIUM
     Indication: Furuncle
     Route: 048
     Dates: start: 20220719, end: 20220720
  2. AUGMENTIN [Suspect]
     Active Substance: AMOXICILLIN\CLAVULANATE POTASSIUM
     Indication: Furuncle
     Dosage: 500 MG/62,5 MG
     Route: 048
     Dates: start: 20220719, end: 20220720
  3. NAPROXEN [Suspect]
     Active Substance: NAPROXEN
     Indication: Furuncle
     Route: 048
     Dates: start: 20220719, end: 20220720

REACTIONS (2)
  - Acute kidney injury [Recovering/Resolving]
  - Hepatic cytolysis [Recovering/Resolving]

NARRATIVE: CASE EVENT DATE: 20220720
